FAERS Safety Report 5554535-9 (Version None)
Quarter: 2007Q4

REPORT INFORMATION
  Report Type: 
  Country: None (occurrence: None)
  Receive Date: 20071130
  Receipt Date: 20070803
  Transmission Date: 20080405
  Serious: No
  Sender: FDA-Public Use
  Company Number: US200706004807

PATIENT
  Sex: Male
  Weight: 95.2 kg

DRUGS (4)
  1. BYETTA [Suspect]
     Indication: TYPE 2 DIABETES MELLITUS
     Dosage: 5 UG, 2/D, SUBCUTANEOUS
     Route: 058
     Dates: start: 20070604
  2. METFORMIN HCL [Concomitant]
  3. ANTI-DIABETICS [Concomitant]
  4. AVANDIA [Concomitant]

REACTIONS (3)
  - BLOOD GLUCOSE DECREASED [None]
  - FATIGUE [None]
  - HYPERHIDROSIS [None]
